APPROVED DRUG PRODUCT: METHYLPHENIDATE HYDROCHLORIDE
Active Ingredient: METHYLPHENIDATE HYDROCHLORIDE
Strength: 20MG
Dosage Form/Route: TABLET;ORAL
Application: A040220 | Product #003
Applicant: WATSON LABORATORIES INC
Approved: Aug 29, 1997 | RLD: No | RS: No | Type: DISCN